FAERS Safety Report 5660561-1 (Version None)
Quarter: 2008Q1

REPORT INFORMATION
  Report Type: 
  Country: None (occurrence: None)
  Receive Date: 20080311
  Receipt Date: 20071108
  Transmission Date: 20080703
  Serious: No
  Sender: FDA-Public Use
  Company Number: US-BAYER-200713699BCC

PATIENT
  Age: 75 Year
  Sex: Male
  Weight: 99 kg

DRUGS (6)
  1. ALEVE [Suspect]
     Indication: MUSCULOSKELETAL PAIN
     Dosage: TOTAL DAILY DOSE: 220 MG  UNIT DOSE: 220 MG
     Route: 048
     Dates: start: 20071107, end: 20071108
  2. CRESTOR [Concomitant]
  3. LISINOPRIL [Concomitant]
  4. NORVASC [Concomitant]
  5. INSULIN [Concomitant]
  6. SPIRIVA [Concomitant]

REACTIONS (2)
  - MUSCULOSKELETAL PAIN [None]
  - POOR QUALITY SLEEP [None]
